FAERS Safety Report 8512212-6 (Version None)
Quarter: 2012Q3

REPORT INFORMATION
  Report Type: 
  Country: None (occurrence: None)
  Receive Date: 20120716
  Receipt Date: 20120702
  Transmission Date: 20120928
  Serious: No
  Sender: FDA-Public Use
  Company Number: US-ASTRAZENECA-2012SE41879

PATIENT
  Age: 48 Year
  Sex: Male
  Weight: 70.3 kg

DRUGS (25)
  1. SEROQUEL XR [Suspect]
     Indication: MAJOR DEPRESSION
     Route: 048
     Dates: start: 20080101
  2. SEROQUEL XR [Suspect]
     Route: 048
  3. ZYRTEC [Concomitant]
  4. ZOFRAN [Concomitant]
  5. SIMVASTATIN [Concomitant]
  6. CARAFATE [Concomitant]
  7. DONNATAL [Concomitant]
  8. MELATONIN [Concomitant]
  9. VERAMYST [Concomitant]
  10. BENADRYL [Concomitant]
  11. ACETAMINOPHEN [Concomitant]
  12. ALBUTEROL [Concomitant]
  13. VENTOLIN [Concomitant]
  14. VALIUM [Concomitant]
  15. AZALASTINE [Concomitant]
  16. IMMUNOTHERAPY TREATMENT [Concomitant]
  17. DOXEPIN [Suspect]
     Route: 065
  18. DULERA [Concomitant]
  19. VALIUM [Concomitant]
  20. OMEPRAZOLE [Concomitant]
  21. CELEXA [Concomitant]
  22. ZANTAC [Concomitant]
  23. IMITREX [Concomitant]
  24. PRAMOSONE [Concomitant]
  25. GAVISCON [Concomitant]

REACTIONS (9)
  - CONVERSION DISORDER [None]
  - SOMNOLENCE [None]
  - THERAPEUTIC RESPONSE UNEXPECTED [None]
  - MEMORY IMPAIRMENT [None]
  - COGNITIVE DISORDER [None]
  - DEPRESSION [None]
  - INJURY [None]
  - INTENTIONAL DRUG MISUSE [None]
  - MUSCULOSKELETAL DISCOMFORT [None]
